FAERS Safety Report 5782585-6 (Version None)
Quarter: 2008Q2

REPORT INFORMATION
  Report Type: 
  Country: None (occurrence: None)
  Receive Date: 20080624
  Receipt Date: 20080611
  Transmission Date: 20081010
  Serious: Yes (Other)
  Sender: FDA-Public Use
  Company Number: US-PFIZER INC-2008049995

PATIENT
  Sex: Male
  Weight: 97.2 kg

DRUGS (3)
  1. LYRICA [Suspect]
     Indication: FIBROMYALGIA
     Dosage: DAILY DOSE:300MG
     Route: 048
  2. ZOLOFT [Concomitant]
     Route: 048
  3. ANALGESICS [Concomitant]
     Route: 048

REACTIONS (12)
  - ANXIETY [None]
  - BLISTER [None]
  - BLOOD PRESSURE ABNORMAL [None]
  - CONVULSION [None]
  - PAIN [None]
  - PALPITATIONS [None]
  - SKIN EXFOLIATION [None]
  - SKIN LESION [None]
  - STAPHYLOCOCCAL SKIN INFECTION [None]
  - THINKING ABNORMAL [None]
  - TREMOR [None]
  - WEIGHT INCREASED [None]
